FAERS Safety Report 8610012 (Version 3)
Quarter: 2013Q3

REPORT INFORMATION
  Report Type: Spontaneous
  Country: DK (occurrence: DK)
  Receive Date: 20120612
  Receipt Date: 20130731
  Transmission Date: 20140515
  Serious: Yes (Death, Other)
  Sender: FDA-Public Use
  Company Number: PHHY2012DK048866

PATIENT
  Age: 73 Year
  Sex: Male
  Weight: 80 kg

DRUGS (10)
  1. ZOMETA [Suspect]
     Indication: METASTASES TO BONE
     Dosage: 4 MG/5 ML EVERY 4 WEEKS
     Route: 042
     Dates: start: 20090107, end: 20111114
  2. ZOMETA [Suspect]
     Dosage: 4 MG/5 ML EVERY 4 WEEKS
     Route: 042
     Dates: start: 20120419, end: 20120529
  3. XGEVA [Suspect]
     Indication: METASTASES TO BONE
     Dosage: 120 MG
     Route: 058
     Dates: start: 20111114, end: 20120208
  4. GABAPENTIN [Concomitant]
     Indication: PAIN
     Dates: start: 20110629
  5. CONTALGIN [Concomitant]
     Indication: PAIN
     Dates: start: 20070623
  6. FLUOXETIN [Concomitant]
     Dates: start: 20061012
  7. CALCIUM CITRATE W/COLECALCIFEROL [Concomitant]
     Indication: PROPHYLAXIS
     Dates: start: 200610
  8. CENTYL MED KALIUMKLORID [Concomitant]
     Indication: HYPERTENSION
  9. PREDNISOLON [Concomitant]
     Indication: ASTHMA
     Dates: start: 20061009
  10. FLUCONAZOLE [Concomitant]

REACTIONS (9)
  - Prostate cancer [Fatal]
  - Osteonecrosis of jaw [Not Recovered/Not Resolved]
  - Gingival swelling [Not Recovered/Not Resolved]
  - Pain in jaw [Not Recovered/Not Resolved]
  - Hypoaesthesia oral [Not Recovered/Not Resolved]
  - Erythema [Unknown]
  - Swelling [Unknown]
  - Oral disorder [Unknown]
  - Dyspnoea [Unknown]
